FAERS Safety Report 15974228 (Version 2)
Quarter: 2019Q1

REPORT INFORMATION
  Report Type: Report from Study
  Country: None (occurrence: CA)
  Receive Date: 20190218
  Receipt Date: 20190318
  Transmission Date: 20190418
  Serious: No
  Sender: FDA-Public Use
  Company Number: CA-ABBVIE-19K-028-2666946-00

PATIENT
  Sex: Female
  Weight: 89.9 kg

DRUGS (1)
  1. HUMIRA [Suspect]
     Active Substance: ADALIMUMAB
     Indication: CROHN^S DISEASE
     Route: 058
     Dates: start: 20171108

REACTIONS (5)
  - Gallbladder disorder [Unknown]
  - Hiatus hernia [Unknown]
  - Diaphragmatic hernia [Unknown]
  - Cholelithiasis [Unknown]
  - Anastomotic stenosis [Unknown]
